FAERS Safety Report 24930457 (Version 1)
Quarter: 2025Q1

REPORT INFORMATION
  Report Type: Spontaneous
  Country: GB (occurrence: GB)
  Receive Date: 20250205
  Receipt Date: 20250205
  Transmission Date: 20250408
  Serious: Yes (Life-Threatening, Hospitalization, Other)
  Sender: ELI LILLY AND COMPANY
  Company Number: None

PATIENT
  Age: 51 Year
  Sex: Female
  Weight: 76 kg

DRUGS (3)
  1. MOUNJARO [Suspect]
     Active Substance: TIRZEPATIDE
     Indication: Weight control
     Route: 065
     Dates: start: 20240901
  2. RAMIPRIL [Concomitant]
     Active Substance: RAMIPRIL
     Indication: Hypertension
  3. NAPROXEN [Concomitant]
     Active Substance: NAPROXEN
     Indication: Product used for unknown indication

REACTIONS (6)
  - Psychotic disorder [Not Recovered/Not Resolved]
  - Suicidal ideation [Unknown]
  - Drug dependence [Unknown]
  - Memory impairment [Unknown]
  - Feeding disorder [Unknown]
  - Hypophagia [Unknown]

NARRATIVE: CASE EVENT DATE: 20250105
